FAERS Safety Report 4698466-5 (Version None)
Quarter: 2005Q2

REPORT INFORMATION
  Report Type: 
  Country: None (occurrence: None)
  Receive Date: 20050621
  Receipt Date: 20050606
  Transmission Date: 20051028
  Serious: Yes (Life-Threatening, Hospitalization)
  Sender: FDA-Public Use
  Company Number: GBS050617580

PATIENT
  Age: 67 Year
  Sex: Female

DRUGS (8)
  1. DOBUTAMINE HCL [Suspect]
     Indication: SCAN MYOCARDIAL PERFUSION
     Dosage: 8.41 MG
     Dates: start: 20050426, end: 20050426
  2. RANITIDINE [Concomitant]
  3. ASPIRIN [Concomitant]
  4. SERETIDE [Concomitant]
  5. IPRATROPIUM BROMIDE [Concomitant]
  6. TERBUTALINE [Concomitant]
  7. LORATADINE [Concomitant]
  8. GTN [Concomitant]

REACTIONS (5)
  - ATRIOVENTRICULAR BLOCK COMPLETE [None]
  - BLOOD PRESSURE DECREASED [None]
  - BLOOD PRESSURE INCREASED [None]
  - HEART RATE DECREASED [None]
  - HEART RATE INCREASED [None]
